FAERS Safety Report 17200028 (Version 3)
Quarter: 2020Q1

REPORT INFORMATION
  Report Type: Spontaneous
  Country: US (occurrence: US)
  Receive Date: 20191226
  Receipt Date: 20200205
  Transmission Date: 20200409
  Serious: No
  Sender: FDA-Public Use
  Company Number: US-JNJFOC-20191224188

PATIENT
  Sex: Female
  Weight: 5.45 kg

DRUGS (1)
  1. INFANTS TYLENOL [Suspect]
     Active Substance: ACETAMINOPHEN
     Indication: PYREXIA
     Dosage: 1 IN A HALF ML
     Route: 048

REACTIONS (2)
  - Wrong technique in product usage process [Unknown]
  - Product selection error [Unknown]
